FAERS Safety Report 5605807-0 (Version None)
Quarter: 2008Q1

REPORT INFORMATION
  Report Type: 
  Country: None (occurrence: None)
  Receive Date: 20080129
  Receipt Date: 20080128
  Transmission Date: 20080703
  Serious: Yes (Other)
  Sender: FDA-Public Use
  Company Number: ES-BRISTOL-MYERS SQUIBB COMPANY-14049332

PATIENT
  Age: 26 Year
  Sex: Female

DRUGS (5)
  1. CYCLOPHOSPHAMIDE [Suspect]
     Indication: PROPHYLAXIS
  2. METHOTREXATE [Suspect]
     Indication: PROPHYLAXIS AGAINST GRAFT VERSUS HOST DISEASE
     Dosage: ON DAYS 1, 3 AND 6.
     Route: 042
  3. BUSULFAN [Suspect]
     Indication: PROPHYLAXIS
  4. CYCLOSPORINE [Suspect]
     Indication: PROPHYLAXIS AGAINST GRAFT VERSUS HOST DISEASE
     Dosage: FROM DAY 90 MG/12 HOURS, DOSE WAS DECREASED FROM 100MG/DAY TO 75 MG/DAY
     Route: 042
  5. ANTITHYMOCYTE GLOBULIN [Suspect]
     Indication: PROPHYLAXIS

REACTIONS (2)
  - EOSINOPHILIC PUSTULAR FOLLICULITIS [None]
  - OESOPHAGITIS [None]
